FAERS Safety Report 8962745 (Version 3)
Quarter: 2014Q2

REPORT INFORMATION
  Report Type: Report from Study
  Country: ES (occurrence: ES)
  Receive Date: 20121213
  Receipt Date: 20131018
  Transmission Date: 20141212
  Serious: Yes (Hospitalization, Disabling)
  Sender: FDA-Public Use
  Company Number: ES-PFIZER INC-ES-WYE-H09853209

PATIENT
  Age: 61 Year
  Sex: Male

DRUGS (33)
  1. RAPAMUNE [Suspect]
     Indication: PROPHYLAXIS AGAINST TRANSPLANT REJECTION
     Dosage: 9.0 MG, 1X/DAY
     Route: 048
     Dates: start: 20030805
  2. RAPAMUNE [Suspect]
     Dosage: 3 MG, 1X/DAY
     Route: 048
     Dates: start: 20030807
  3. RAPAMUNE [Suspect]
     Dosage: 1.5 MG, 1X/DAY
     Route: 048
     Dates: start: 20030916
  4. METHYLPREDNISOLONE SODIUM SUCCINATE [Suspect]
     Dosage: 500.0 MG, 1X/DAY
     Route: 048
     Dates: start: 20030403, end: 20030403
  5. METHYLPREDNISOLONE SODIUM SUCCINATE [Suspect]
     Dosage: 20.0 MG, 1X/DAY
     Route: 048
     Dates: start: 20030404, end: 20030405
  6. DACLIZUMAB [Suspect]
     Indication: PROPHYLAXIS AGAINST TRANSPLANT REJECTION
     Dosage: 125.0 MG, 1X/DAY
     Route: 042
     Dates: start: 20030403, end: 20030403
  7. DACLIZUMAB [Suspect]
     Dosage: 75.0 MG, 1 IN 2 WK
     Route: 042
     Dates: start: 20030416, end: 20030511
  8. MYCOPHENOLATE MOFETIL [Suspect]
     Indication: PROPHYLAXIS AGAINST TRANSPLANT REJECTION
     Dosage: 500.0 MG, 4 TOTAL
     Route: 048
     Dates: start: 20030403, end: 20030403
  9. MYCOPHENOLATE MOFETIL [Suspect]
     Dosage: 500 MG, 2 IN 12 HR
     Route: 048
     Dates: start: 20030404
  10. MYCOPHENOLATE MOFETIL [Suspect]
     Dosage: 750 MG, 1 IN 12 HR
     Route: 048
     Dates: start: 20030421
  11. MYCOPHENOLATE MOFETIL [Suspect]
     Dosage: 250 MG, 1 IN 12 HR
     Route: 048
     Dates: start: 20030828, end: 20030830
  12. CICLOSPORIN [Suspect]
     Indication: PROPHYLAXIS AGAINST TRANSPLANT REJECTION
     Dosage: 260 MG, 1X/DAY
     Route: 048
     Dates: start: 20030403, end: 20030403
  13. CICLOSPORIN [Suspect]
     Dosage: 62.5 MG, 1 IN 12 HR
     Route: 048
     Dates: start: 20030404
  14. CICLOSPORIN [Suspect]
     Dosage: 50 MG, 1 IN 12 HR
     Route: 048
     Dates: start: 20030512, end: 20030805
  15. PREDNISONE [Suspect]
     Indication: PROPHYLAXIS AGAINST TRANSPLANT REJECTION
     Dosage: 75.0 MG, 1X/DAY
     Route: 048
     Dates: start: 20030331
  16. PREDNISONE [Suspect]
     Dosage: 5 MG, 4X/DAY
     Route: 048
     Dates: start: 20030405
  17. PREDNISONE [Suspect]
     Dosage: 5.0 MG, 2X/12 HR
     Route: 048
     Dates: start: 20030428
  18. PREDNISONE [Suspect]
     Dosage: 10 MG, 1X/DAY
     Route: 048
     Dates: start: 20030616
  19. PREDNISONE [Suspect]
     Dosage: 15 MG, 1X/DAY
     Route: 048
     Dates: start: 20030922
  20. PREDNISONE [Suspect]
     Dosage: 12.5 MG, 1X/DAY
     Route: 048
     Dates: start: 20031119
  21. PREDNISONE [Suspect]
     Dosage: 10 MG, 1X/DAY
     Route: 048
     Dates: start: 20031217
  22. AMLODIPINE BESILATE [Concomitant]
     Dosage: UNK
     Route: 048
     Dates: start: 20030404
  23. CEFOXITIN [Concomitant]
     Dosage: 1 G, 1X/DAY
     Route: 042
     Dates: start: 20030408, end: 20030414
  24. GANCICLOVIR [Concomitant]
     Dosage: 100 MG, 1X/DAY
     Route: 042
     Dates: start: 20030404, end: 20030415
  25. GANCICLOVIR [Concomitant]
     Dosage: 175 MG, 1X/DAY
     Route: 042
     Dates: start: 20030830, end: 20030830
  26. GANCICLOVIR [Concomitant]
     Dosage: UNK
     Dates: end: 20030916
  27. NYSTATIN [Concomitant]
     Dosage: 5 ML, 3X/DAY
     Route: 048
     Dates: start: 20030404, end: 20030415
  28. SULFAMETHOXAZOLE/TRIMETHOPRIM ^DAK^ [Concomitant]
     Dosage: 800 MG, 1X/DAY CAPSULE
     Route: 048
     Dates: start: 20030404
  29. SULFAMETHOXAZOLE/TRIMETHOPRIM ^DAK^ [Concomitant]
     Dosage: TABLET
     Route: 048
     Dates: end: 20030919
  30. ASPIRIN [Concomitant]
     Route: 048
  31. ACICLOVIR [Concomitant]
     Dosage: 800 MG, 2X/DAY
     Route: 048
     Dates: start: 20030415, end: 20030704
  32. ATORVASTATIN [Concomitant]
     Dosage: 10 MG, 1X/DAY
     Route: 048
     Dates: start: 20030808
  33. ATORVASTATIN [Concomitant]
     Dosage: UNK
     Route: 048
     Dates: end: 20030830

REACTIONS (4)
  - Pneumonia streptococcal [Recovered/Resolved]
  - Cytomegalovirus infection [Recovered/Resolved]
  - Renal vessel disorder [Recovering/Resolving]
  - Renal failure acute [Recovered/Resolved]
